FAERS Safety Report 18506525 (Version 3)
Quarter: 2021Q1

REPORT INFORMATION
  Report Type: Spontaneous
  Country: US (occurrence: US)
  Receive Date: 20201116
  Receipt Date: 20210129
  Transmission Date: 20210419
  Serious: Yes (Other)
  Sender: FDA-Public Use
  Company Number: US-PFIZER INC-2020446698

PATIENT
  Age: 66 Year
  Sex: Female
  Weight: 66.68 kg

DRUGS (2)
  1. NICOTINE. [Concomitant]
     Active Substance: NICOTINE
     Indication: SMOKING CESSATION THERAPY
     Dosage: 21 MG
     Route: 062
  2. NICOTROL [Suspect]
     Active Substance: NICOTINE
     Indication: SMOKING CESSATION THERAPY
     Dosage: UNK
     Dates: start: 20201104, end: 20201108

REACTIONS (6)
  - Feeling jittery [Unknown]
  - Paraesthesia oral [Unknown]
  - Choking [Unknown]
  - Drug ineffective [Unknown]
  - Affective disorder [Unknown]
  - Anger [Unknown]

NARRATIVE: CASE EVENT DATE: 202011
